FAERS Safety Report 22338828 (Version 2)
Quarter: 2023Q2

REPORT INFORMATION
  Report Type: Spontaneous
  Country: FR (occurrence: FR)
  Receive Date: 20230518
  Receipt Date: 20230612
  Transmission Date: 20230721
  Serious: Yes (Death, Hospitalization, Other)
  Sender: FDA-Public Use
  Company Number: FR-AMGEN-FRASP2023084917

PATIENT
  Sex: Female
  Weight: 50 kg

DRUGS (1)
  1. LUMAKRAS [Suspect]
     Active Substance: SOTORASIB
     Indication: Product used for unknown indication
     Dosage: 480 MILLIGRAM, QD
     Route: 048

REACTIONS (3)
  - Squamous cell carcinoma [Fatal]
  - Left ventricular failure [Unknown]
  - Pleural effusion [Unknown]
